FAERS Safety Report 6160109-1 (Version None)
Quarter: 2009Q2

REPORT INFORMATION
  Report Type: 
  Country: None (occurrence: None)
  Receive Date: 20090417
  Receipt Date: 20090415
  Transmission Date: 20091009
  Serious: Yes (Hospitalization)
  Sender: FDA-Public Use
  Company Number: DL2009227

PATIENT
  Age: 24 Year
  Sex: Female

DRUGS (2)
  1. MIFEPREX [Suspect]
     Indication: ABORTION INDUCED
     Dosage: 200 MG, ORAL
     Route: 048
     Dates: start: 20090306
  2. MISOPROSTOL [Suspect]
     Dosage: 800 MCG, VAGINAL
     Route: 067
     Dates: start: 20090308

REACTIONS (8)
  - ANAEMIA [None]
  - BETA HAEMOLYTIC STREPTOCOCCAL INFECTION [None]
  - HAEMORRHAGE [None]
  - PAIN [None]
  - POST ABORTION INFECTION [None]
  - PYREXIA [None]
  - SEPSIS [None]
  - TACHYCARDIA [None]
